FAERS Safety Report 5304944-8 (Version None)
Quarter: 2007Q2

REPORT INFORMATION
  Report Type: 
  Country: None (occurrence: None)
  Receive Date: 20070423
  Receipt Date: 20070410
  Transmission Date: 20071010
  Serious: Yes (Other)
  Sender: FDA-Public Use
  Company Number: US-SHR-US-2007-009118

PATIENT
  Age: 32 Year
  Sex: Female
  Weight: 50.794 kg

DRUGS (2)
  1. BETASERON [Suspect]
     Indication: RELAPSING-REMITTING MULTIPLE SCLEROSIS
     Dosage: 8 MIU, EVERY 2D
     Route: 058
     Dates: start: 20040223
  2. INSULIN [Concomitant]

REACTIONS (3)
  - GALLBLADDER DISORDER [None]
  - PANCREATITIS [None]
  - WEIGHT DECREASED [None]
